FAERS Safety Report 10447719 (Version 3)
Quarter: 2014Q4

REPORT INFORMATION
  Report Type: Spontaneous
  Country: MT (occurrence: MT)
  Receive Date: 20140911
  Receipt Date: 20141014
  Transmission Date: 20150528
  Serious: Yes (Other)
  Sender: FDA-Public Use
  Company Number: PHHY2014MT075082

PATIENT
  Sex: Female

DRUGS (1)
  1. AFINITOR [Suspect]
     Active Substance: EVEROLIMUS
     Indication: BREAST CANCER METASTATIC
     Dosage: 10 MG, QD
     Route: 048
     Dates: start: 20140606

REACTIONS (10)
  - Gout [Recovered/Resolved]
  - White blood cell count decreased [Recovered/Resolved]
  - Eye pruritus [Recovered/Resolved]
  - Skin fissures [Not Recovered/Not Resolved]
  - Pain in extremity [Recovered/Resolved]
  - Mouth ulceration [Recovering/Resolving]
  - Dry skin [Not Recovered/Not Resolved]
  - Eye swelling [Recovered/Resolved]
  - Pruritus generalised [Recovered/Resolved]
  - Nail disorder [Not Recovered/Not Resolved]

NARRATIVE: CASE EVENT DATE: 201406
